FAERS Safety Report 4327823-1 (Version None)
Quarter: 2004Q1

REPORT INFORMATION
  Report Type: 
  Country: None (occurrence: None)
  Receive Date: 20040331
  Receipt Date: 20040325
  Transmission Date: 20041129
  Serious: Yes (Hospitalization)
  Sender: FDA-Public Use
  Company Number: MX-BRISTOL-MYERS SQUIBB COMPANY-12543344

PATIENT
  Age: 65 Year
  Sex: Male

DRUGS (2)
  1. TEQUIN [Suspect]
     Indication: BRONCHITIS ACUTE
     Route: 048
     Dates: start: 20040109, end: 20040110
  2. EUGLUCON [Concomitant]
     Route: 048

REACTIONS (1)
  - HYPOGLYCAEMIA [None]
